FAERS Safety Report 13964484 (Version 1)
Quarter: 2017Q3

REPORT INFORMATION
  Report Type: Spontaneous
  Country: US (occurrence: None)
  Receive Date: 20170913
  Receipt Date: 20170913
  Transmission Date: 20171128
  Serious: No
  Sender: FDA-Public Use
  Company Number: None

PATIENT
  Age: 57 Year
  Sex: Male

DRUGS (3)
  1. DEXAMETHASONE. [Concomitant]
     Active Substance: DEXAMETHASONE
  2. GRANISETRON INJ 1MG/ML SDV [Suspect]
     Active Substance: GRANISETRON
     Indication: LUNG NEOPLASM MALIGNANT
     Route: 042
     Dates: start: 20170404
  3. KEYTRUDA [Concomitant]
     Active Substance: PEMBROLIZUMAB

REACTIONS (3)
  - Inappropriate schedule of drug administration [None]
  - Product quality issue [None]
  - Product availability issue [None]

NARRATIVE: CASE EVENT DATE: 20170911
